FAERS Safety Report 9007322 (Version 1)
Quarter: 2013Q1

REPORT INFORMATION
  Report Type: Spontaneous
  Country: US (occurrence: US)
  Receive Date: 20130110
  Receipt Date: 20130110
  Transmission Date: 20140127
  Serious: Yes (Other)
  Sender: FDA-Public Use
  Company Number: CHPA2013US000505

PATIENT
  Age: 83 Year
  Sex: Male

DRUGS (5)
  1. MAALOX ADV MAXIMUM STRENGTH ANTACID/ANTIGAS [Suspect]
     Indication: ULCER
     Dosage: RECOMMENDED DOSAGE, UNK
     Route: 048
  2. HYDROCODONE [Concomitant]
     Dosage: UNK, UNK
  3. TRAZODONE [Concomitant]
  4. DRUG THERAPY NOS [Concomitant]
     Indication: PROSTATIC DISORDER
     Dosage: UNK, UNK
  5. RIOPAN [Concomitant]
     Dosage: UNK, UNK

REACTIONS (7)
  - Nerve injury [Not Recovered/Not Resolved]
  - Prostatic disorder [Not Recovered/Not Resolved]
  - Hernia [Unknown]
  - Hypertension [Not Recovered/Not Resolved]
  - Procedural complication [Recovered/Resolved]
  - Off label use [Unknown]
  - Expired drug administered [Unknown]
